FAERS Safety Report 10727079 (Version 2)
Quarter: 2015Q1

REPORT INFORMATION
  Report Type: Spontaneous
  Country: CN (occurrence: CN)
  Receive Date: 20150121
  Receipt Date: 20150313
  Transmission Date: 20150721
  Serious: Yes (Other)
  Sender: FDA-Public Use
  Company Number: CN-BRISTOL-MYERS SQUIBB COMPANY-BMS-2014-001591

PATIENT
  Age: 42 Year

DRUGS (1)
  1. BARACLUDE [Suspect]
     Active Substance: ENTECAVIR
     Indication: HEPATITIS B
     Dosage: 0.5 MG, QD
     Route: 048
     Dates: start: 20100420

REACTIONS (3)
  - Exposure via father [Unknown]
  - Urticaria [Unknown]
  - Abortion induced [Unknown]

NARRATIVE: CASE EVENT DATE: 201411
